FAERS Safety Report 16247129 (Version 3)
Quarter: 2019Q2

REPORT INFORMATION
  Report Type: Report from Study
  Country: CA (occurrence: CA)
  Receive Date: 20190427
  Receipt Date: 20190512
  Transmission Date: 20190711
  Serious: No
  Sender: FDA-Public Use
  Company Number: CA-ROCHE-2308671

PATIENT
  Age: 62 Year
  Sex: Male

DRUGS (5)
  1. MYRBETRIQ [Concomitant]
     Active Substance: MIRABEGRON
  2. OCREVUS [Suspect]
     Active Substance: OCRELIZUMAB
     Indication: PRIMARY PROGRESSIVE MULTIPLE SCLEROSIS
     Dosage: 300 MG AT DAY 0 AND 14, THEN 600 MG EVERY 6 MONTH ;ONGOING: YES
     Route: 042
     Dates: start: 20181018
  3. FAMPYRA [Concomitant]
     Active Substance: DALFAMPRIDINE
  4. ALEVE [Concomitant]
     Active Substance: NAPROXEN SODIUM
     Dosage: AS REQUIRED
     Route: 065
  5. TYLENOL [Concomitant]
     Active Substance: ACETAMINOPHEN
     Indication: PRODUCT USED FOR UNKNOWN INDICATION

REACTIONS (2)
  - Sputum discoloured [Unknown]
  - Nasopharyngitis [Recovering/Resolving]

NARRATIVE: CASE EVENT DATE: 201904
